APPROVED DRUG PRODUCT: DICLOXACILLIN SODIUM
Active Ingredient: DICLOXACILLIN SODIUM
Strength: EQ 250MG BASE
Dosage Form/Route: CAPSULE;ORAL
Application: A062286 | Product #001 | TE Code: AB
Applicant: TEVA PHARMACEUTICALS USA INC
Approved: Jun 3, 1982 | RLD: No | RS: No | Type: RX